FAERS Safety Report 17614632 (Version 1)
Quarter: 2020Q2

REPORT INFORMATION
  Report Type: Spontaneous
  Country: US (occurrence: US)
  Receive Date: 20200402
  Receipt Date: 20200402
  Transmission Date: 20200713
  Serious: Yes (Other)
  Sender: FDA-Public Use
  Company Number: US-B.BRAUN MEDICAL INC.-2082239

PATIENT
  Age: 57 Year
  Sex: Male
  Weight: 97 kg

DRUGS (13)
  1. EZETIMIBE. [Concomitant]
     Active Substance: EZETIMIBE
  2. METOPROLOL TARTRATE. [Concomitant]
     Active Substance: METOPROLOL TARTRATE
  3. TORSEMIDE. [Concomitant]
     Active Substance: TORSEMIDE
  4. SENNA [Concomitant]
     Active Substance: SENNA LEAF\SENNOSIDES\SENNOSIDES A AND B
  5. INSULIN [Concomitant]
     Active Substance: INSULIN NOS
  6. ASPIRIN EC [Concomitant]
     Active Substance: ASPIRIN
  7. POLYETHYLENE GLYCOL (POLYETHYLENE GLYCOL 3350) [Concomitant]
     Active Substance: POLYETHYLENE GLYCOL 3350
  8. FAMOTIDINE. [Concomitant]
     Active Substance: FAMOTIDINE
  9. ACETAMINOPHEN. [Concomitant]
     Active Substance: ACETAMINOPHEN
  10. HEPARIN SODIUM IN DEXTROSE [Suspect]
     Active Substance: HEPARIN SODIUM
     Dates: start: 20200223
  11. DOCUSATE SODIUM. [Concomitant]
     Active Substance: DOCUSATE SODIUM
  12. ROSUVASTATIN CALCIUM. [Concomitant]
     Active Substance: ROSUVASTATIN CALCIUM
  13. VANCOMYCIN HYDROCHLORIDE. [Concomitant]
     Active Substance: VANCOMYCIN HYDROCHLORIDE

REACTIONS (1)
  - Drug ineffective [None]
